FAERS Safety Report 24301540 (Version 1)
Quarter: 2024Q3

REPORT INFORMATION
  Report Type: Spontaneous
  Country: US (occurrence: US)
  Receive Date: 20240910
  Receipt Date: 20240910
  Transmission Date: 20241016
  Serious: Yes (Hospitalization)
  Sender: UCB
  Company Number: US-UCBSA-2024040241

PATIENT
  Sex: Male

DRUGS (1)
  1. NAYZILAM [Suspect]
     Active Substance: MIDAZOLAM
     Indication: Seizure
     Dosage: 1 DOSAGE FORM, AS NEEDED (PRN)
     Route: 045
     Dates: end: 20240805

REACTIONS (2)
  - Hospitalisation [Unknown]
  - Product availability issue [Unknown]
